FAERS Safety Report 15696361 (Version 1)
Quarter: 2018Q4

REPORT INFORMATION
  Report Type: Other
  Country: CA (occurrence: CA)
  Receive Date: 20181206
  Receipt Date: 20181206
  Transmission Date: 20190205
  Serious: Yes (Life-Threatening)
  Sender: FDA-Public Use
  Company Number: CA-HLSUS-2018-CA-000601

PATIENT
  Age: 24 Year
  Sex: Male
  Weight: 92 kg

DRUGS (2)
  1. CLOZARIL [Suspect]
     Active Substance: CLOZAPINE
     Indication: PRODUCT USED FOR UNKNOWN INDICATION
     Route: 048
     Dates: start: 20180222, end: 20180416
  2. LITHIUM. [Concomitant]
     Active Substance: LITHIUM

REACTIONS (8)
  - Neutropenia [Recovered/Resolved]
  - Orchitis [Recovered/Resolved]
  - Abdominal pain [Recovered/Resolved]
  - Goitre [Recovered/Resolved]
  - Pyrexia [Recovered/Resolved]
  - Oropharyngeal pain [Recovered/Resolved]
  - Bone pain [Recovered/Resolved]
  - Vomiting [Recovered/Resolved]

NARRATIVE: CASE EVENT DATE: 20180412
